FAERS Safety Report 7275722-8 (Version None)
Quarter: 2011Q1

REPORT INFORMATION
  Report Type: 
  Country: None (occurrence: None)
  Receive Date: 20110131
  Receipt Date: 20110114
  Transmission Date: 20110831
  Serious: Yes (Hospitalization)
  Sender: FDA-Public Use
  Company Number: 023636

PATIENT
  Age: 42 Year
  Sex: Male

DRUGS (2)
  1. TOPIRAMATE [Concomitant]
  2. LEVETIRACETAM [Suspect]
     Indication: EPILEPSY
     Dosage: 1000 MG/DAY AT THERAPY INITIATION, GRADULY INCREASED)
     Dates: start: 20060214, end: 20060302

REACTIONS (2)
  - DELIRIUM [None]
  - AGGRESSION [None]
